FAERS Safety Report 5940994-6 (Version None)
Quarter: 2008Q4

REPORT INFORMATION
  Report Type: 
  Country: None (occurrence: None)
  Receive Date: 20081104
  Receipt Date: 20081031
  Transmission Date: 20090506
  Serious: Yes (Death)
  Sender: FDA-Public Use
  Company Number: PHEH2008US09842

PATIENT
  Sex: Female

DRUGS (3)
  1. FEMARA [Suspect]
  2. ZOMETA [Suspect]
  3. ARICEPT [Suspect]

REACTIONS (1)
  - DEATH [None]
